FAERS Safety Report 6559811-9 (Version None)
Quarter: 2010Q1

REPORT INFORMATION
  Report Type: 
  Country: None (occurrence: None)
  Receive Date: 20100129
  Receipt Date: 20090908
  Transmission Date: 20100710
  Serious: No
  Sender: FDA-Public Use
  Company Number: US-ABBOTT-09P-163-0596794-00

PATIENT
  Sex: Female
  Weight: 81.72 kg

DRUGS (8)
  1. HUMIRA [Suspect]
     Indication: CROHN'S DISEASE
     Route: 058
     Dates: start: 20090501
  2. HUMIRA [Suspect]
     Indication: VASCULITIS
  3. HUMIRA [Suspect]
     Indication: RHEUMATOID ARTHRITIS
  4. METHOTREXATE [Concomitant]
     Indication: ARTHRITIS
     Dosage: UNKNOWN
  5. ASACOL [Concomitant]
     Indication: CROHN'S DISEASE
     Dosage: UNKNOWN
  6. EVISTA [Concomitant]
     Indication: OSTEOPOROSIS
     Dosage: UNKNOWN
  7. SYNTHROID [Concomitant]
     Indication: HYPOTHYROIDISM
     Dosage: UNKNOWN
  8. ZESTRIL [Concomitant]
     Indication: HYPERTENSION
     Dosage: UNKNOWN

REACTIONS (1)
  - INJECTION SITE PAIN [None]
